FAERS Safety Report 5485835-9 (Version None)
Quarter: 2007Q4

REPORT INFORMATION
  Report Type: 
  Country: None (occurrence: None)
  Receive Date: 20071015
  Receipt Date: 20071001
  Transmission Date: 20080405
  Serious: Yes (Hospitalization, Other)
  Sender: FDA-Public Use
  Company Number: US-ELI_LILLY_AND_COMPANY-USA040260101

PATIENT
  Sex: Male
  Weight: 63 kg

DRUGS (2)
  1. STRATTERA [Suspect]
     Indication: ATTENTION DEFICIT/HYPERACTIVITY DISORDER
     Dosage: 80 MG, DAILY (1/D)
     Route: 048
     Dates: start: 20031101, end: 20040525
  2. ZOLOFT [Concomitant]
     Dosage: 25 MG, DAILY (1/D)
     Route: 048
     Dates: start: 20031001

REACTIONS (6)
  - ABDOMINAL PAIN [None]
  - BONE MARROW FAILURE [None]
  - FATIGUE [None]
  - HEPATITIS [None]
  - NEUTROPENIA [None]
  - THROMBOCYTOPENIA [None]
